FAERS Safety Report 22137151 (Version 1)
Quarter: 2023Q1

REPORT INFORMATION
  Report Type: Spontaneous
  Country: CA (occurrence: CA)
  Receive Date: 20230324
  Receipt Date: 20230324
  Transmission Date: 20230417
  Serious: Yes (Death, Other)
  Sender: FDA-Public Use
  Company Number: CA-MALLINCKRODT-MNK202300470

PATIENT
  Age: 26 Week
  Sex: Male
  Weight: 0.67 kg

DRUGS (1)
  1. NITRIC OXIDE [Suspect]
     Active Substance: NITRIC OXIDE
     Indication: Premature baby
     Dosage: 10 PPM
     Route: 055
     Dates: start: 20230313, end: 20230313

REACTIONS (3)
  - Premature baby [Fatal]
  - Cardiac arrest [Unknown]
  - Product use issue [Unknown]
